FAERS Safety Report 9379044 (Version 1)
Quarter: 2013Q3

REPORT INFORMATION
  Report Type: Spontaneous
  Country: US (occurrence: US)
  Receive Date: 20130702
  Receipt Date: 20130702
  Transmission Date: 20140515
  Serious: Yes (Hospitalization)
  Sender: FDA-Public Use
  Company Number: US-BRISTOL-MYERS SQUIBB COMPANY-19047356

PATIENT
  Age: 66 Year
  Sex: Female

DRUGS (2)
  1. BYDUREON [Suspect]
     Dates: start: 201211, end: 201212
  2. INSULIN [Concomitant]

REACTIONS (1)
  - Intestinal obstruction [Unknown]
